FAERS Safety Report 4445933-5 (Version None)
Quarter: 2004Q3

REPORT INFORMATION
  Report Type: 
  Country: None (occurrence: None)
  Receive Date: 20040903
  Receipt Date: 20040831
  Transmission Date: 20050211
  Serious: Yes (Death, Life-Threatening)
  Sender: FDA-Public Use
  Company Number: HQWYE736631AUG04

PATIENT
  Age: 70 Year
  Sex: Female
  Weight: 91.25 kg

DRUGS (1)
  1. MYLOTARG [Suspect]
     Indication: ACUTE MYELOID LEUKAEMIA
     Dosage: 11.6 MG 1X PER 1 DAY, INTRAVENOUS
     Route: 042
     Dates: start: 20040817, end: 20040817

REACTIONS (1)
  - CEREBRAL HAEMORRHAGE [None]
